FAERS Safety Report 20463140 (Version 1)
Quarter: 2022Q1

REPORT INFORMATION
  Report Type: Spontaneous
  Country: US (occurrence: US)
  Receive Date: 20220211
  Receipt Date: 20220211
  Transmission Date: 20220424
  Serious: No
  Sender: FDA-Public Use
  Company Number: US-PERRIGO-21US009544

PATIENT
  Age: 28 Year
  Sex: Female
  Weight: 44.444 kg

DRUGS (2)
  1. NAPROXEN SODIUM [Suspect]
     Active Substance: NAPROXEN SODIUM
     Indication: Uterine spasm
     Dosage: 220 MG, 1 TO 2 TIMES PER MONTH, PRN
     Route: 048
     Dates: end: 2020
  2. NAPROXEN SODIUM [Suspect]
     Active Substance: NAPROXEN SODIUM
     Indication: Headache
     Dosage: 660 MG, SINGLE
     Route: 048
     Dates: start: 20210705, end: 20210705

REACTIONS (4)
  - Feeling hot [Recovered/Resolved]
  - Loss of consciousness [Recovered/Resolved]
  - Heart rate increased [Unknown]
  - Incorrect dose administered [Recovered/Resolved]

NARRATIVE: CASE EVENT DATE: 20210705
